FAERS Safety Report 24988295 (Version 2)
Quarter: 2025Q1

REPORT INFORMATION
  Report Type: Report from Study
  Country: US (occurrence: US)
  Receive Date: 20250220
  Receipt Date: 20250318
  Transmission Date: 20250409
  Serious: Yes (Other)
  Sender: ALEXION PHARMACEUTICALS
  Company Number: US-AstraZeneca-CH-00805913A

PATIENT

DRUGS (1)
  1. STRENSIQ [Suspect]
     Active Substance: ASFOTASE ALFA
     Indication: Hypophosphatasia

REACTIONS (6)
  - Autoimmune disorder [Not Recovered/Not Resolved]
  - Injection site mass [Unknown]
  - Injection site irritation [Unknown]
  - Muscular weakness [Unknown]
  - Vitamin B6 decreased [Unknown]
  - Blood test abnormal [Unknown]
